FAERS Safety Report 6249892-4 (Version None)
Quarter: 2009Q2

REPORT INFORMATION
  Report Type: 
  Country: None (occurrence: None)
  Receive Date: 20090629
  Receipt Date: 20090618
  Transmission Date: 20091009
  Serious: Yes (Other)
  Sender: FDA-Public Use
  Company Number: IT-ASTRAZENECA-2009SE03032

PATIENT
  Age: 23009 Day
  Sex: Male

DRUGS (1)
  1. SYMBICORT [Suspect]
     Dosage: 320+90 UG
     Route: 055
     Dates: start: 20090305, end: 20090430

REACTIONS (7)
  - BRONCHOSPASM [None]
  - COUGH [None]
  - DYSPNOEA [None]
  - HAEMOPTYSIS [None]
  - ILL-DEFINED DISORDER [None]
  - PYREXIA [None]
  - RALES [None]
